FAERS Safety Report 19441377 (Version 1)
Quarter: 2021Q2

REPORT INFORMATION
  Report Type: Spontaneous
  Country: US (occurrence: US)
  Receive Date: 20210618
  Receipt Date: 20210618
  Transmission Date: 20210717
  Serious: Yes (Hospitalization)
  Sender: FDA-Public Use
  Company Number: None

PATIENT
  Age: 35 Year
  Sex: Female
  Weight: 87.54 kg

DRUGS (1)
  1. NEXPLANON [Suspect]
     Active Substance: ETONOGESTREL
     Indication: CONTRACEPTION
     Route: 023
     Dates: start: 20210315, end: 20210618

REACTIONS (4)
  - Skin discolouration [None]
  - Thrombosis [None]
  - Diabetes mellitus [None]
  - Hypertension [None]

NARRATIVE: CASE EVENT DATE: 20210521
